FAERS Safety Report 19353998 (Version 1)
Quarter: 2021Q2

REPORT INFORMATION
  Report Type: Spontaneous
  Country: CN (occurrence: CN)
  Receive Date: 20210531
  Receipt Date: 20210531
  Transmission Date: 20210717
  Serious: Yes (Other)
  Sender: FDA-Public Use
  Company Number: NVSC2021CN117048

PATIENT
  Age: 21 Year
  Sex: Male

DRUGS (3)
  1. OLARATUMAB [Suspect]
     Active Substance: OLARATUMAB
     Indication: EMBRYONAL RHABDOMYOSARCOMA
     Dosage: ON DAY 1 AND DAY 8 OF 21 DAYS CYCLE
     Route: 042
  2. PAZOPANIB [Suspect]
     Active Substance: PAZOPANIB
     Dosage: 800 MG, QD
     Route: 065
  3. PAZOPANIB [Suspect]
     Active Substance: PAZOPANIB
     Indication: EMBRYONAL RHABDOMYOSARCOMA
     Dosage: 400 MG (AT HOME)
     Route: 065

REACTIONS (5)
  - Epistaxis [Unknown]
  - Hair colour changes [Unknown]
  - Diarrhoea [Unknown]
  - Blindness [Unknown]
  - Pain [Unknown]
